FAERS Safety Report 26139578 (Version 1)
Quarter: 2025Q4

REPORT INFORMATION
  Report Type: Spontaneous
  Country: US (occurrence: US)
  Receive Date: 20251210
  Receipt Date: 20251210
  Transmission Date: 20260117
  Serious: Yes (Hospitalization)
  Sender: MYLAN
  Company Number: US-MYLANLABS-2025M1103651

PATIENT
  Age: 60 Year
  Sex: Female

DRUGS (1)
  1. METHADONE [Suspect]
     Active Substance: METHADONE HYDROCHLORIDE
     Indication: Drug use disorder
     Dosage: 105 MILLIGRAM, QD, TAPERED DOSE

REACTIONS (2)
  - Hyperinsulinaemic hypoglycaemia [Recovering/Resolving]
  - Adrenal insufficiency [Recovering/Resolving]
